FAERS Safety Report 15515975 (Version 5)
Quarter: 2019Q3

REPORT INFORMATION
  Report Type: Spontaneous
  Country: US (occurrence: US)
  Receive Date: 20181017
  Receipt Date: 20190828
  Transmission Date: 20191004
  Serious: No
  Sender: FDA-Public Use
  Company Number: US-PFIZER INC-2018393118

PATIENT
  Age: 77 Year
  Sex: Female

DRUGS (4)
  1. LYRICA [Suspect]
     Active Substance: PREGABALIN
     Indication: TRIGEMINAL NEURALGIA
     Dosage: 100 MG, 3X/DAY
     Route: 048
  2. LYRICA [Suspect]
     Active Substance: PREGABALIN
     Dosage: 150 MG, 1X/DAY [2 PO QHS]
     Route: 048
  3. LYRICA [Suspect]
     Active Substance: PREGABALIN
     Indication: ACTION TREMOR
     Dosage: 300 MG, 3X/DAY
  4. LYRICA [Suspect]
     Active Substance: PREGABALIN
     Dosage: 100 MG, 1X/DAY, [2 PO IN THE MORNING]
     Route: 048

REACTIONS (4)
  - Prescribed overdose [Unknown]
  - Pain [Unknown]
  - Thinking abnormal [Unknown]
  - Incorrect dose administered [Unknown]
